FAERS Safety Report 15801344 (Version 3)
Quarter: 2019Q1

REPORT INFORMATION
  Report Type: Spontaneous
  Country: RO (occurrence: RO)
  Receive Date: 20190109
  Receipt Date: 20190206
  Transmission Date: 20190417
  Serious: Yes (Death, Hospitalization)
  Sender: FDA-Public Use
  Company Number: RO-ROCHE-2241207

PATIENT
  Age: 63 Year
  Sex: Male

DRUGS (17)
  1. DEXAMETHASONE. [Concomitant]
     Active Substance: DEXAMETHASONE
     Indication: DIFFUSE LARGE B-CELL LYMPHOMA
     Route: 065
     Dates: start: 20181018
  2. MESNA. [Concomitant]
     Active Substance: MESNA
     Indication: DIFFUSE LARGE B-CELL LYMPHOMA
     Route: 065
     Dates: start: 201812
  3. FILGRASTIM [Concomitant]
     Active Substance: FILGRASTIM
  4. VINCRISTINE [Concomitant]
     Active Substance: VINCRISTINE
     Indication: DIFFUSE LARGE B-CELL LYMPHOMA
     Route: 065
     Dates: start: 20181018
  5. AMIKACIN. [Concomitant]
     Active Substance: AMIKACIN
     Dosage: 1 VAIL AT 12 HOURS FOR 7 DAYS.
     Route: 065
  6. RITUXIMAB. [Suspect]
     Active Substance: RITUXIMAB
     Indication: DIFFUSE LARGE B-CELL LYMPHOMA
     Route: 065
     Dates: start: 20181018
  7. TAMSULOSIN [Concomitant]
     Active Substance: TAMSULOSIN
     Dosage: (1 PILL/DAY)
     Route: 065
  8. RITUXIMAB. [Suspect]
     Active Substance: RITUXIMAB
     Route: 065
     Dates: start: 20181227
  9. CYCLOPHOSPHAMIDE. [Concomitant]
     Active Substance: CYCLOPHOSPHAMIDE
     Indication: DIFFUSE LARGE B-CELL LYMPHOMA
     Route: 065
     Dates: start: 20181018
  10. SOLU-MEDROL [Concomitant]
     Active Substance: METHYLPREDNISOLONE SODIUM SUCCINATE
     Route: 065
  11. GEMCITABINE [Concomitant]
     Active Substance: GEMCITABINE\GEMCITABINE HYDROCHLORIDE
     Indication: DIFFUSE LARGE B-CELL LYMPHOMA
     Route: 065
     Dates: start: 20181228
  12. OXALIPLATIN. [Concomitant]
     Active Substance: OXALIPLATIN
     Indication: DIFFUSE LARGE B-CELL LYMPHOMA
     Route: 065
     Dates: start: 20181228
  13. OXALIPLATIN. [Concomitant]
     Active Substance: OXALIPLATIN
     Route: 065
     Dates: start: 20181227
  14. FUROSEMIDE. [Concomitant]
     Active Substance: FUROSEMIDE
  15. GEMCITABINE [Concomitant]
     Active Substance: GEMCITABINE\GEMCITABINE HYDROCHLORIDE
     Route: 065
     Dates: start: 20181227
  16. DOXORUBICIN [Concomitant]
     Active Substance: DOXORUBICIN
     Indication: DIFFUSE LARGE B-CELL LYMPHOMA
     Route: 065
     Dates: start: 20181018
  17. ETOPOSIDE. [Concomitant]
     Active Substance: ETOPOSIDE
     Indication: DIFFUSE LARGE B-CELL LYMPHOMA
     Route: 042
     Dates: start: 20181205

REACTIONS (31)
  - Red cell distribution width increased [Unknown]
  - Blood lactate dehydrogenase increased [Unknown]
  - Pyrexia [Unknown]
  - Fatigue [Unknown]
  - Red blood cell count decreased [Unknown]
  - Platelet count decreased [Unknown]
  - Splenic rupture [Recovered/Resolved]
  - Coma [Not Recovered/Not Resolved]
  - Weight decreased [Not Recovered/Not Resolved]
  - Decreased appetite [Unknown]
  - Tremor [Unknown]
  - Haematocrit decreased [Unknown]
  - Neutrophil count decreased [Unknown]
  - Confusional state [Unknown]
  - Decreased appetite [Unknown]
  - Paraesthesia [Unknown]
  - Aplasia [Unknown]
  - Leukopenia [Unknown]
  - Haemoglobin decreased [Unknown]
  - Procalcitonin decreased [Unknown]
  - Monocyte count decreased [Unknown]
  - Anaemia [Unknown]
  - Inflammation [Unknown]
  - Acute kidney injury [Recovering/Resolving]
  - Malaise [Unknown]
  - Lymphocyte count increased [Unknown]
  - Haemorrhage [Recovered/Resolved]
  - White blood cell count decreased [Unknown]
  - Asthenia [Unknown]
  - Blood bicarbonate increased [Unknown]
  - Multiple organ dysfunction syndrome [Fatal]

NARRATIVE: CASE EVENT DATE: 201811
